FAERS Safety Report 4787482-0 (Version None)
Quarter: 2005Q4

REPORT INFORMATION
  Report Type: 
  Country: None (occurrence: None)
  Receive Date: 20051004
  Receipt Date: 20050811
  Transmission Date: 20060501
  Serious: Yes (Hospitalization)
  Sender: FDA-Public Use
  Company Number: FR-SANOFI-SYNTHELABO-A02200502174

PATIENT
  Age: 57 Year
  Sex: Male
  Weight: 113 kg

DRUGS (7)
  1. DANATROL [Suspect]
     Route: 048
     Dates: start: 20050322
  2. DANATROL [Suspect]
     Indication: IDIOPATHIC THROMBOCYTOPENIC PURPURA
     Route: 048
     Dates: start: 20050322
  3. TENORDATE [Concomitant]
     Route: 048
  4. INSULIN [Concomitant]
     Route: 058
     Dates: start: 20050325
  5. TAHOR [Concomitant]
     Route: 048
  6. DIFFU K [Concomitant]
     Route: 048
  7. TARDYFERON [Concomitant]
     Dosage: 3 UNIT
     Route: 048

REACTIONS (6)
  - FLUID RETENTION [None]
  - OEDEMA PERIPHERAL [None]
  - ORTHOPNOEA [None]
  - PLEURAL EFFUSION [None]
  - SODIUM RETENTION [None]
  - WEIGHT INCREASED [None]
